FAERS Safety Report 6679367-X (Version None)
Quarter: 2010Q2

REPORT INFORMATION
  Report Type: 
  Country: None (occurrence: None)
  Receive Date: 20100413
  Receipt Date: 20100318
  Transmission Date: 20101027
  Serious: No
  Sender: FDA-Public Use
  Company Number: US-JNJFOC-20100201076

PATIENT
  Sex: Female
  Weight: 65.32 kg

DRUGS (2)
  1. INVEGA SUSTENNA [Suspect]
     Indication: SCHIZOPHRENIA
     Route: 030
  2. PROZAC [Concomitant]
     Route: 048

REACTIONS (2)
  - AMNESIA [None]
  - CONFUSIONAL STATE [None]
